FAERS Safety Report 6753865-2 (Version None)
Quarter: 2010Q2

REPORT INFORMATION
  Report Type: 
  Country: None (occurrence: None)
  Receive Date: 20100520
  Receipt Date: 20090911
  Transmission Date: 20101027
  Serious: Yes (Other)
  Sender: FDA-Public Use
  Company Number: 2009208956

PATIENT
  Age: 58 Year
  Sex: Female

DRUGS (10)
  1. PROVERA [Suspect]
     Indication: HORMONE REPLACEMENT THERAPY
     Dosage: ORAL
     Route: 048
     Dates: start: 19890101, end: 19951201
  2. PROVERA [Suspect]
     Indication: MENOPAUSAL SYMPTOMS
     Dosage: ORAL
     Route: 048
     Dates: start: 19890101, end: 19951201
  3. ESTRACE [Suspect]
     Indication: HORMONE REPLACEMENT THERAPY
     Dosage: 1 MG
     Dates: start: 19890101, end: 19951201
  4. ESTRACE [Suspect]
     Indication: MENOPAUSAL SYMPTOMS
     Dosage: 1 MG
     Dates: start: 19890101, end: 19951201
  5. PREMPRO [Suspect]
     Indication: HORMONE REPLACEMENT THERAPY
     Dosage: 0.625/2.5MG
     Dates: start: 19951201, end: 20021201
  6. PREMPRO [Suspect]
     Indication: MENOPAUSAL SYMPTOMS
     Dosage: 0.625/2.5MG
     Dates: start: 19951201, end: 20021201
  7. FEMHRT [Suspect]
     Indication: HORMONE REPLACEMENT THERAPY
     Dosage: 1MG/5MCG
     Dates: start: 20021201, end: 20031201
  8. ATENOLOL [Concomitant]
  9. SYNTHROID [Concomitant]
  10. HYDROCHLOROTHIAZIDE [Concomitant]

REACTIONS (1)
  - BREAST CANCER FEMALE [None]
